FAERS Safety Report 12598115 (Version 1)
Quarter: 2016Q3

REPORT INFORMATION
  Report Type: Spontaneous
  Country: CA (occurrence: CA)
  Receive Date: 20160726
  Receipt Date: 20160726
  Transmission Date: 20161109
  Serious: Yes (Life-Threatening, Hospitalization, Other)
  Sender: FDA-Public Use
  Company Number: CA-ELI_LILLY_AND_COMPANY-CA201607010050

PATIENT
  Age: 39 Year

DRUGS (13)
  1. PRIMIDONE. [Interacting]
     Active Substance: PRIMIDONE
     Dosage: UNK, UNKNOWN
     Route: 065
  2. QUETIAPINE. [Interacting]
     Active Substance: QUETIAPINE
     Indication: PRODUCT USED FOR UNKNOWN INDICATION
     Dosage: UNK, UNKNOWN
     Route: 065
  3. OLANZAPINE. [Suspect]
     Active Substance: OLANZAPINE
     Dosage: UNK, UNKNOWN
     Route: 065
  4. CITALOPRAM [Interacting]
     Active Substance: CITALOPRAM HYDROBROMIDE
     Dosage: UNK, UNKNOWN
     Route: 065
  5. PHENYTOIN. [Interacting]
     Active Substance: PHENYTOIN
     Indication: PRODUCT USED FOR UNKNOWN INDICATION
     Dosage: UNK, UNKNOWN
     Route: 065
  6. OLANZAPINE. [Suspect]
     Active Substance: OLANZAPINE
     Indication: PRODUCT USED FOR UNKNOWN INDICATION
     Dosage: UNK, UNKNOWN
     Route: 065
  7. PHENYTOIN. [Interacting]
     Active Substance: PHENYTOIN
     Dosage: UNK, UNKNOWN
     Route: 065
  8. BUPROPION. [Interacting]
     Active Substance: BUPROPION
     Indication: PRODUCT USED FOR UNKNOWN INDICATION
     Dosage: UNK, UNKNOWN
     Route: 065
  9. ESCITALOPRAM [Suspect]
     Active Substance: ESCITALOPRAM OXALATE
     Indication: PRODUCT USED FOR UNKNOWN INDICATION
     Dosage: UNK, UNKNOWN
     Route: 065
  10. ESCITALOPRAM [Suspect]
     Active Substance: ESCITALOPRAM OXALATE
     Dosage: UNK, UNKNOWN
     Route: 065
  11. CITALOPRAM [Interacting]
     Active Substance: CITALOPRAM HYDROBROMIDE
     Indication: PRODUCT USED FOR UNKNOWN INDICATION
     Dosage: UNK, UNKNOWN
     Route: 065
  12. PRIMIDONE. [Interacting]
     Active Substance: PRIMIDONE
     Indication: PRODUCT USED FOR UNKNOWN INDICATION
     Dosage: UNK, UNKNOWN
     Route: 065
  13. QUETIAPINE. [Interacting]
     Active Substance: QUETIAPINE
     Dosage: UNK, UNKNOWN
     Route: 065

REACTIONS (9)
  - Sepsis [Recovered/Resolved]
  - Pneumonia [Recovered/Resolved]
  - Drug interaction [Recovered/Resolved]
  - Hyperthermia [Recovered/Resolved]
  - Serotonin syndrome [Recovered/Resolved]
  - Arrhythmia [Recovered/Resolved]
  - Overdose [Recovered/Resolved]
  - Major depression [Unknown]
  - Alcohol withdrawal syndrome [Recovered/Resolved]
